FAERS Safety Report 16003895 (Version 3)
Quarter: 2019Q1

REPORT INFORMATION
  Report Type: Spontaneous
  Country: CA (occurrence: CA)
  Receive Date: 20190226
  Receipt Date: 20190319
  Transmission Date: 20190418
  Serious: Yes (Other)
  Sender: FDA-Public Use
  Company Number: CA-CELLTRION INC.-2018CA024223

PATIENT

DRUGS (18)
  1. AZATHIOPRINE. [Concomitant]
     Active Substance: AZATHIOPRINE
     Dosage: 1 DF, BID
     Route: 048
     Dates: start: 2014
  2. METHYLPREDNISOLONE. [Concomitant]
     Active Substance: METHYLPREDNISOLONE
     Dosage: 20 MG
  3. INFLECTRA [Suspect]
     Active Substance: INFLIXIMAB-DYYB
     Dosage: 780 MG, UNK (AS ONE TIME DOSE)
     Route: 042
     Dates: start: 20180818, end: 20180818
  4. INFLECTRA [Suspect]
     Active Substance: INFLIXIMAB-DYYB
     Dosage: 585 MG (7.5 MG/KG), EVERY 4 WEEKS
     Route: 042
     Dates: start: 20180921
  5. INFLECTRA [Suspect]
     Active Substance: INFLIXIMAB-DYYB
     Dosage: 585 MG (7.5 MG/KG), EVERY 4 WEEKS
     Route: 042
     Dates: start: 20190115
  6. METRONIDAZOLE. [Concomitant]
     Active Substance: METRONIDAZOLE
     Dosage: 500 MG, TID
     Route: 048
     Dates: start: 20180724
  7. AZATHIOPRINE. [Concomitant]
     Active Substance: AZATHIOPRINE
     Dosage: 100 MG, BID
     Route: 048
  8. INFLECTRA [Suspect]
     Active Substance: INFLIXIMAB-DYYB
     Dosage: 585 MG (7.5 MG/KG), EVERY 4 WEEKS
     Route: 042
     Dates: start: 20181012
  9. INFLECTRA [Suspect]
     Active Substance: INFLIXIMAB-DYYB
     Dosage: 585 MG (7.5 MG/KG), EVERY 4 WEEKS
     Route: 042
     Dates: start: 20181109
  10. DIPHENHYDRAMINE. [Concomitant]
     Active Substance: DIPHENHYDRAMINE
     Dosage: 25 MG
     Route: 048
  11. CIPROFLOXACIN. [Concomitant]
     Active Substance: CIPROFLOXACIN
     Dosage: 500 MG, TID
     Route: 048
     Dates: start: 20180724
  12. ACETAMINOPHEN. [Concomitant]
     Active Substance: ACETAMINOPHEN
     Dosage: 650 MG
     Route: 048
  13. INFLECTRA [Suspect]
     Active Substance: INFLIXIMAB-DYYB
     Indication: CROHN^S DISEASE
     Dosage: 380 MG, EVERY 0, 2, 6 WEEKS EVERY 8 WEEKS
     Route: 042
     Dates: start: 20180119, end: 20180530
  14. INFLECTRA [Suspect]
     Active Substance: INFLIXIMAB-DYYB
     Dosage: 585 MG (7.5 MG/KG), EVERY 4 WEEKS
     Route: 042
     Dates: start: 20190211
  15. INFLECTRA [Suspect]
     Active Substance: INFLIXIMAB-DYYB
     Dosage: 585 MG (7.5 MG/KG), EVERY 4 WEEKS
     Route: 042
     Dates: start: 20190211
  16. VITAMIN B12 [Concomitant]
     Active Substance: CYANOCOBALAMIN
     Dosage: WEEKLY
  17. INFLECTRA [Suspect]
     Active Substance: INFLIXIMAB-DYYB
     Dosage: 585 MG (7.5 MG/KG), EVERY 4 WEEKS
     Route: 042
     Dates: start: 20181109
  18. INFLECTRA [Suspect]
     Active Substance: INFLIXIMAB-DYYB
     Dosage: 585 MG (7.5 MG/KG), EVERY 4 WEEKS
     Route: 042
     Dates: start: 20181219

REACTIONS (14)
  - Arthralgia [Recovered/Resolved]
  - Faecal calprotectin increased [Recovering/Resolving]
  - Product use issue [Unknown]
  - Drug level below therapeutic [Unknown]
  - Malaise [Not Recovered/Not Resolved]
  - Constipation [Unknown]
  - Disease recurrence [Recovered/Resolved]
  - Abdominal pain upper [Not Recovered/Not Resolved]
  - Aeromonas infection [Unknown]
  - Skin fissures [Not Recovered/Not Resolved]
  - Anal stenosis [Unknown]
  - Blood pressure fluctuation [Unknown]
  - Condition aggravated [Unknown]
  - Product use issue [Unknown]

NARRATIVE: CASE EVENT DATE: 201807
